FAERS Safety Report 4429602-3 (Version None)
Quarter: 2004Q3

REPORT INFORMATION
  Report Type: 
  Country: None (occurrence: None)
  Receive Date: 20040816
  Receipt Date: 20040802
  Transmission Date: 20050211
  Serious: Yes (Life-Threatening, Hospitalization, Disabling, Other)
  Sender: FDA-Public Use
  Company Number: 2004194636JP

PATIENT
  Age: 52 Year
  Sex: Male
  Weight: 58.1 kg

DRUGS (5)
  1. CAMPTOSAR [Suspect]
     Indication: NON-HODGKIN'S LYMPHOMA
     Dosage: 50 MG, CYCLIC, IV DRIP
     Route: 041
     Dates: start: 20020725, end: 20020727
  2. CARBOPLATIN [Suspect]
     Indication: NON-HODGKIN'S LYMPHOMA
     Dosage: 400 MG, CYCLIC, IV DRIP
     Route: 041
     Dates: start: 20020725, end: 20020725
  3. ETOPOSIDE [Suspect]
     Indication: NON-HODGKIN'S LYMPHOMA
     Dosage: 160 MG, CYCLIC, IV DRIP
     Route: 041
     Dates: start: 20020725, end: 20020727
  4. RITUXIMAB (RITUXIMAB) [Suspect]
     Indication: NON-HODGKIN'S LYMPHOMA
     Dosage: 590 MG, UNK, IV DRIP
     Route: 041
     Dates: start: 20020724, end: 20020724
  5. DECADRON [Concomitant]

REACTIONS (30)
  - AEROMONA INFECTION [None]
  - ANAEMIA [None]
  - BACTERIAL INFECTION [None]
  - DERMATITIS BULLOUS [None]
  - DRUG INEFFECTIVE [None]
  - ERYTHEMA [None]
  - FEBRILE NEUTROPENIA [None]
  - FEELING COLD [None]
  - HAEMORRHAGE [None]
  - HIP DISARTICULATION [None]
  - HYPOTENSION [None]
  - INFECTIVE MYOSITIS [None]
  - LEG AMPUTATION [None]
  - LEUKOPENIA [None]
  - MUSCLE NECROSIS [None]
  - NEUTROPENIA [None]
  - OEDEMA [None]
  - OEDEMA PERIPHERAL [None]
  - PAIN IN EXTREMITY [None]
  - PEDAL PULSE ABNORMAL [None]
  - PERIPHERAL COLDNESS [None]
  - PNEUMONIA [None]
  - POST PROCEDURAL COMPLICATION [None]
  - RENAL IMPAIRMENT [None]
  - SEPSIS [None]
  - SEPTIC SHOCK [None]
  - SKIN DISCOLOURATION [None]
  - SKIN ODOUR ABNORMAL [None]
  - THROMBOCYTOPENIA [None]
  - WOUND ABSCESS [None]
